FAERS Safety Report 4452748-0 (Version None)
Quarter: 2004Q3

REPORT INFORMATION
  Report Type: 
  Country: None (occurrence: None)
  Receive Date: 20040813
  Receipt Date: 20040521
  Transmission Date: 20050211
  Serious: No
  Sender: FDA-Public Use
  Company Number: S04-USA-03359-01

PATIENT
  Age: 84 Year
  Sex: Female

DRUGS (3)
  1. NAMENDA [Suspect]
     Indication: DEMENTIA ALZHEIMER'S TYPE
     Dates: start: 20040501
  2. BLOOD PRESSURE MEDICATION (NOS) [Concomitant]
  3. ANTIDEPRESSANT (NOS) [Concomitant]

REACTIONS (1)
  - CONFUSIONAL STATE [None]
